FAERS Safety Report 9847119 (Version 1)
Quarter: 2014Q1

REPORT INFORMATION
  Report Type: Report from Study
  Country: US (occurrence: US)
  Receive Date: 20140127
  Receipt Date: 20140127
  Transmission Date: 20141002
  Serious: No
  Sender: FDA-Public Use
  Company Number: US-GILEAD-2014-0092943

PATIENT
  Age: 63 Year
  Sex: Female

DRUGS (4)
  1. SOFOSBUVIR [Suspect]
     Indication: CHRONIC HEPATITIS C
     Dosage: 400 MG, UNK
     Route: 065
     Dates: start: 20140117
  2. RIBAVIRIN [Concomitant]
  3. PEGINTERFERON [Concomitant]
  4. PRILOSEC                           /00661201/ [Concomitant]
     Dosage: UNK

REACTIONS (2)
  - Anxiety [Unknown]
  - Rash [Unknown]
